FAERS Safety Report 9463087 (Version 1)
Quarter: 2013Q3

REPORT INFORMATION
  Report Type: Report from Study
  Country: US (occurrence: US)
  Receive Date: 20130816
  Receipt Date: 20130816
  Transmission Date: 20140515
  Serious: Yes (Other)
  Sender: FDA-Public Use
  Company Number: US-ABBOTT-13P-163-1132741-00

PATIENT
  Age: 59 Year
  Sex: Male
  Weight: 93.98 kg

DRUGS (6)
  1. HUMIRA [Suspect]
     Indication: RHEUMATOID ARTHRITIS
     Dates: start: 2011, end: 20130731
  2. UNKNOWN MEDICATION [Concomitant]
     Indication: RHEUMATOID ARTHRITIS
  3. ATENOLOL [Concomitant]
     Indication: HYPERTENSION
  4. NORVASC [Concomitant]
     Indication: HYPERTENSION
  5. MICARDIS HCT [Concomitant]
     Indication: HYPERTENSION
  6. TYLENOL [Concomitant]
     Indication: PAIN

REACTIONS (8)
  - Wound dehiscence [Recovered/Resolved]
  - Malignant melanoma [Not Recovered/Not Resolved]
  - Malignant melanoma [Not Recovered/Not Resolved]
  - Malignant melanoma [Recovered/Resolved]
  - Wound [Not Recovered/Not Resolved]
  - Impaired healing [Not Recovered/Not Resolved]
  - Wound [Not Recovered/Not Resolved]
  - Dermal cyst [Not Recovered/Not Resolved]
